FAERS Safety Report 8231684-8 (Version None)
Quarter: 2012Q1

REPORT INFORMATION
  Report Type: 
  Country: None (occurrence: None)
  Receive Date: 20120323
  Receipt Date: 20120316
  Transmission Date: 20120608
  Serious: Yes (Hospitalization, Other)
  Sender: FDA-Public Use
  Company Number: DE-UCBSA-053618

PATIENT
  Age: 50 Year
  Sex: Female
  Weight: 60 kg

DRUGS (3)
  1. CITALOPRAM HYDROBROMIDE [Suspect]
     Dosage: UNKNOWN QUANTITY
  2. KEPPRA [Suspect]
     Dosage: UNKNOWN QUANTITY
  3. ZOPICLON [Suspect]
     Dosage: UNKNOWN QUANTITY

REACTIONS (2)
  - ACCIDENTAL EXPOSURE [None]
  - FEELING DRUNK [None]
